FAERS Safety Report 5663545-2 (Version None)
Quarter: 2008Q1

REPORT INFORMATION
  Report Type: 
  Country: None (occurrence: None)
  Receive Date: 20080313
  Receipt Date: 20080310
  Transmission Date: 20080703
  Serious: Yes (Life-Threatening, Hospitalization)
  Sender: FDA-Public Use
  Company Number: JP-MERCK-0712USA07962

PATIENT
  Age: 60 Year
  Sex: Female
  Weight: 52 kg

DRUGS (6)
  1. FOSAMAX [Suspect]
     Route: 048
     Dates: start: 20071019, end: 20071109
  2. SELBEX [Concomitant]
     Route: 065
     Dates: start: 20070101
  3. VOLTAREN [Concomitant]
     Route: 054
     Dates: start: 20071020, end: 20071022
  4. FLUMARIN [Concomitant]
     Route: 042
     Dates: start: 20071022, end: 20071026
  5. LOXONIN [Concomitant]
     Route: 048
     Dates: start: 20071022, end: 20071113
  6. FLOMOX [Concomitant]
     Route: 048
     Dates: start: 20071027, end: 20071031

REACTIONS (1)
  - WHITE BLOOD CELL COUNT DECREASED [None]
